FAERS Safety Report 5069786-X (Version None)
Quarter: 2006Q3

REPORT INFORMATION
  Report Type: 
  Country: None (occurrence: None)
  Receive Date: 20060803
  Receipt Date: 20060727
  Transmission Date: 20061208
  Serious: Yes (Hospitalization)
  Sender: FDA-Public Use
  Company Number: FR-GLAXOSMITHKLINE-B0432572A

PATIENT
  Age: 7 Year
  Sex: Female
  Weight: 24 kg

DRUGS (3)
  1. LAMICTAL [Suspect]
     Indication: EPILEPSY
     Route: 048
     Dates: start: 20060530, end: 20060612
  2. DEPAKENE [Concomitant]
     Indication: EPILEPSY
     Dosage: 300MG THREE TIMES PER DAY
     Route: 048
     Dates: start: 20060528
  3. RIVOTRIL [Concomitant]
     Indication: EPILEPSY
     Route: 042
     Dates: start: 20060527, end: 20060602

REACTIONS (3)
  - FOOD ALLERGY [None]
  - RASH MORBILLIFORM [None]
  - SKIN LESION [None]
